FAERS Safety Report 9563795 (Version 1)
Quarter: 2013Q3

REPORT INFORMATION
  Report Type: Spontaneous
  Country: US (occurrence: None)
  Receive Date: 20130926
  Receipt Date: 20130926
  Transmission Date: 20140515
  Serious: Yes (Life-Threatening, Hospitalization)
  Sender: FDA-Public Use
  Company Number: None

PATIENT
  Age: 46 Year
  Sex: Female
  Weight: 54.43 kg

DRUGS (2)
  1. MACRODANTIN [Suspect]
     Indication: CYSTOSCOPY
     Dosage: 2 PILLS
  2. AVELOX [Suspect]
     Indication: SINUSITIS

REACTIONS (1)
  - Anaphylactic reaction [None]
